FAERS Safety Report 10062174 (Version 1)
Quarter: 2014Q2

REPORT INFORMATION
  Report Type: Spontaneous
  Country: US (occurrence: US)
  Receive Date: 20140407
  Receipt Date: 20140407
  Transmission Date: 20141212
  Serious: Yes (Other)
  Sender: FDA-Public Use
  Company Number: US-PFIZER INC-2014095515

PATIENT
  Age: 53 Year
  Sex: Female
  Weight: 76.19 kg

DRUGS (3)
  1. PRISTIQ [Suspect]
     Indication: DEPRESSION
     Dosage: 100 MG, DAILY
     Dates: start: 2007, end: 20140330
  2. PROZAC [Concomitant]
     Dosage: 20 MG, UNK
  3. LEVOTHYROXINE SODIUM [Concomitant]
     Dosage: 0.5 MG, UNK

REACTIONS (6)
  - Suicidal ideation [Unknown]
  - Depression [Unknown]
  - Eating disorder [Unknown]
  - Feeling abnormal [Unknown]
  - Crying [Unknown]
  - Insomnia [Unknown]
